FAERS Safety Report 18172071 (Version 2)
Quarter: 2021Q1

REPORT INFORMATION
  Report Type: Report from Study
  Country: None (occurrence: US)
  Receive Date: 20200820
  Receipt Date: 20210301
  Transmission Date: 20210419
  Serious: Yes (Other)
  Sender: FDA-Public Use
  Company Number: US-ABBVIE-20K-163-3531920-00

PATIENT
  Age: 70 Year
  Sex: Male

DRUGS (1)
  1. RINVOQ [Suspect]
     Active Substance: UPADACITINIB
     Indication: RHEUMATOID ARTHRITIS
     Route: 048

REACTIONS (4)
  - Transient ischaemic attack [Recovered/Resolved with Sequelae]
  - Sinus disorder [Not Recovered/Not Resolved]
  - Neuropathy peripheral [Unknown]
  - Muscle tightness [Unknown]

NARRATIVE: CASE EVENT DATE: 202007
